FAERS Safety Report 4458323-6 (Version None)
Quarter: 2004Q3

REPORT INFORMATION
  Report Type: 
  Country: None (occurrence: None)
  Receive Date: 20040917
  Receipt Date: 20040707
  Transmission Date: 20050211
  Serious: Yes (Hospitalization)
  Sender: FDA-Public Use
  Company Number: US-JNJFOC-20040201145

PATIENT
  Age: 35 Year
  Sex: Female
  Weight: 49.6 kg

DRUGS (7)
  1. TOPAMAX [Suspect]
     Indication: MIGRAINE
     Dosage: 25 MG, 2 IN 1 DAY
     Dates: start: 20031114, end: 20040102
  2. PANCREASE (PANCRELIPASE) UNSPECIFIED [Concomitant]
  3. NEXIUM [Concomitant]
  4. FLEXERIL [Concomitant]
  5. ZANTAC [Concomitant]
  6. LORTAB [Concomitant]
  7. POTASSIUM (POTASSIUM) [Concomitant]

REACTIONS (33)
  - ANXIETY [None]
  - ARTHRALGIA [None]
  - BACK PAIN [None]
  - BLOOD POTASSIUM DECREASED [None]
  - CHEST DISCOMFORT [None]
  - CHEST PAIN [None]
  - COGNITIVE DISORDER [None]
  - CONSTIPATION [None]
  - DEHYDRATION [None]
  - DIZZINESS [None]
  - EAR PAIN [None]
  - FATIGUE [None]
  - GASTROOESOPHAGEAL REFLUX DISEASE [None]
  - HYPOAESTHESIA [None]
  - HYPOVOLAEMIA [None]
  - LOOSE STOOLS [None]
  - LUNG DISORDER [None]
  - MUSCLE SPASMS [None]
  - MUSCLE TWITCHING [None]
  - MUSCULOSKELETAL STIFFNESS [None]
  - MYALGIA [None]
  - NAUSEA [None]
  - NECK PAIN [None]
  - PAIN [None]
  - PARANOIA [None]
  - RESPIRATORY TRACT INFECTION [None]
  - SENSATION OF PRESSURE [None]
  - SINUSITIS [None]
  - TENSION HEADACHE [None]
  - TREMOR [None]
  - VAGINAL INFECTION [None]
  - VOMITING [None]
  - WEIGHT DECREASED [None]
